FAERS Safety Report 9272260 (Version 1)
Quarter: 2013Q2

REPORT INFORMATION
  Report Type: Spontaneous
  Country: BR (occurrence: BR)
  Receive Date: 20130506
  Receipt Date: 20130506
  Transmission Date: 20140414
  Serious: Yes (Other)
  Sender: FDA-Public Use
  Company Number: PHHY2013BR040871

PATIENT
  Sex: Female
  Weight: 65 kg

DRUGS (4)
  1. RITALINA [Suspect]
     Indication: ATTENTION DEFICIT/HYPERACTIVITY DISORDER
     Dosage: 3 TABLETS DAILY AND SOMETIMES 5 TABLETS DAILY
     Route: 048
     Dates: start: 2003
  2. RITALINA [Suspect]
     Dosage: 3 TABLETS DAILY AND SOMETIMES 5 TABLETS DAILY
     Route: 048
  3. CONCERTA [Suspect]
     Dosage: UNK
  4. ALENIA [Concomitant]
     Indication: ASTHMA
     Dosage: 2 INHALATIONS DAILY

REACTIONS (8)
  - Scleroderma [Not Recovered/Not Resolved]
  - Drug withdrawal syndrome [Not Recovered/Not Resolved]
  - Feeling of despair [Recovered/Resolved]
  - Irritability [Recovered/Resolved]
  - Feeling abnormal [Recovered/Resolved]
  - Insomnia [Recovered/Resolved]
  - Disturbance in attention [Recovered/Resolved]
  - Wrong technique in drug usage process [Unknown]
